FAERS Safety Report 6250309-4 (Version None)
Quarter: 2009Q2

REPORT INFORMATION
  Report Type: 
  Country: None (occurrence: None)
  Receive Date: 20090626
  Receipt Date: 20090626
  Transmission Date: 20091009
  Serious: Yes (Other)
  Sender: FDA-Public Use
  Company Number: None

PATIENT
  Sex: Female
  Weight: 70.3075 kg

DRUGS (2)
  1. LEVOFLEXACIN 500 MG. - MCNEIL [Suspect]
     Indication: INFECTION
     Dosage: 500 MG. 1 DAILY ORAL
     Route: 048
     Dates: start: 20090512, end: 20090519
  2. KLOR-CON MIO - UPSHER - SMI [Suspect]
     Indication: BLOOD POTASSIUM DECREASED
     Dosage: MEQ 10 1 DAILY ORAL
     Route: 048
     Dates: start: 20090522, end: 20090602

REACTIONS (2)
  - PRODUCT SUBSTITUTION ISSUE [None]
  - UNEVALUABLE EVENT [None]
